FAERS Safety Report 16540820 (Version 4)
Quarter: 2020Q1

REPORT INFORMATION
  Report Type: Spontaneous
  Country: US (occurrence: US)
  Receive Date: 20190708
  Receipt Date: 20200204
  Transmission Date: 20200409
  Serious: Yes (Hospitalization, Other)
  Sender: FDA-Public Use
  Company Number: US-SA-2019SA180242

PATIENT
  Age: 56 Year
  Sex: Female

DRUGS (1)
  1. DUPIXENT [Suspect]
     Active Substance: DUPILUMAB
     Indication: ASTHMA
     Dosage: 300 MG, QOW
     Route: 058
     Dates: start: 20190612

REACTIONS (6)
  - Injection site bruising [Unknown]
  - Drug ineffective [Unknown]
  - Jugular vein occlusion [Unknown]
  - Thrombosis [Unknown]
  - Stent placement [Recovering/Resolving]
  - Injection site exfoliation [Unknown]

NARRATIVE: CASE EVENT DATE: 201906
